FAERS Safety Report 23785135 (Version 1)
Quarter: 2024Q2

REPORT INFORMATION
  Report Type: Spontaneous
  Country: HR (occurrence: None)
  Receive Date: 20240425
  Receipt Date: 20240425
  Transmission Date: 20240716
  Serious: Yes (Other)
  Sender: FDA-Public Use
  Company Number: 2024A098105

PATIENT
  Age: 58 Year
  Sex: Male

DRUGS (1)
  1. DURVALUMAB [Suspect]
     Active Substance: DURVALUMAB
     Indication: Non-small cell lung cancer stage IIIB
     Route: 042
     Dates: start: 20210309

REACTIONS (3)
  - Metastases to central nervous system [Unknown]
  - Lung cancer metastatic [Unknown]
  - Anaplastic lymphoma kinase gene mutation [Unknown]
